FAERS Safety Report 18391729 (Version 1)
Quarter: 2020Q4

REPORT INFORMATION
  Report Type: Spontaneous
  Country: US (occurrence: US)
  Receive Date: 20201015
  Receipt Date: 20201015
  Transmission Date: 20210114
  Serious: Yes (Hospitalization)
  Sender: FDA-Public Use
  Company Number: None

PATIENT
  Age: 31 Year
  Sex: Female

DRUGS (3)
  1. OPSUMIT [Suspect]
     Active Substance: MACITENTAN
     Indication: PULMONARY ARTERIAL HYPERTENSION
     Route: 048
     Dates: start: 20200224
  2. OPSUMIT [Suspect]
     Active Substance: MACITENTAN
     Indication: CONNECTIVE TISSUE DISORDER
     Route: 048
     Dates: start: 20200224
  3. OPSUMIT [Suspect]
     Active Substance: MACITENTAN
     Indication: HEART DISEASE CONGENITAL
     Route: 048
     Dates: start: 20200224

REACTIONS (14)
  - Diarrhoea [None]
  - Abdominal pain [None]
  - Haemorrhoids [None]
  - Hypovolaemia [None]
  - Chills [None]
  - Enterocolitis [None]
  - Fatigue [None]
  - Sepsis [None]
  - Shock [None]
  - Haematochezia [None]
  - Melaena [None]
  - Gastrointestinal haemorrhage [None]
  - Arteriovenous malformation [None]
  - Gastrointestinal polyp haemorrhage [None]

NARRATIVE: CASE EVENT DATE: 20200918
